FAERS Safety Report 4972997-2 (Version None)
Quarter: 2006Q2

REPORT INFORMATION
  Report Type: 
  Country: None (occurrence: None)
  Receive Date: 20060414
  Receipt Date: 20060308
  Transmission Date: 20061013
  Serious: Yes (Hospitalization)
  Sender: FDA-Public Use
  Company Number: FR-GLAXOSMITHKLINE-B0415007A

PATIENT
  Age: 67 Year
  Sex: Male
  Weight: 95 kg

DRUGS (13)
  1. AVANDAMET [Suspect]
     Route: 048
     Dates: start: 20051219, end: 20060308
  2. REQUIP [Concomitant]
     Indication: PARKINSON'S DISEASE
     Dosage: 5MG THREE TIMES PER DAY
     Route: 048
     Dates: start: 20000101
  3. MODOPAR [Concomitant]
     Indication: PARKINSON'S DISEASE
     Dosage: 125MG TWICE PER DAY
     Route: 048
     Dates: start: 20050317
  4. KARDEGIC [Concomitant]
     Dosage: 160MG PER DAY
     Route: 048
  5. TRIATEC [Concomitant]
     Indication: HYPERTENSION
     Dosage: 5MG PER DAY
     Route: 048
  6. ATENOLOL [Concomitant]
     Dosage: 100MG PER DAY
     Route: 048
  7. VASTAREL [Concomitant]
     Dosage: 35MG TWICE PER DAY
     Route: 048
     Dates: start: 19970101
  8. TARDYFERON [Concomitant]
     Dosage: 80MG TWICE PER DAY
     Route: 048
  9. OGAST [Concomitant]
     Dosage: 15MG PER DAY
     Route: 048
  10. FLODIL [Concomitant]
     Dosage: 5MG PER DAY
     Route: 048
     Dates: start: 19980101
  11. TENORMIN [Concomitant]
     Indication: HYPERTENSION
     Dosage: 100MG PER DAY
     Route: 048
     Dates: start: 19980101
  12. AMLOR [Concomitant]
     Dates: end: 20060301
  13. TRAMADOL [Concomitant]
     Dosage: 100MG VARIABLE DOSE
     Route: 048

REACTIONS (9)
  - BRAIN NATRIURETIC PEPTIDE INCREASED [None]
  - CARDIAC FAILURE [None]
  - DYSPNOEA [None]
  - FLUID RETENTION [None]
  - HEART SOUNDS ABNORMAL [None]
  - MITRAL VALVE INCOMPETENCE [None]
  - OEDEMA PERIPHERAL [None]
  - VASODILATATION [None]
  - WEIGHT INCREASED [None]
